FAERS Safety Report 4753732-X (Version None)
Quarter: 2005Q3

REPORT INFORMATION
  Report Type: 
  Country: None (occurrence: None)
  Receive Date: 20050818
  Receipt Date: 20050810
  Transmission Date: 20060218
  Serious: Yes (Hospitalization)
  Sender: FDA-Public Use
  Company Number: 2005BH001087

PATIENT
  Weight: 72 kg

DRUGS (4)
  1. DIANEAL PD4 ULTRABAG (DIANEAL PD4 GLUCOSE AND ELECTROLYTES) [Suspect]
     Indication: RENAL FAILURE CHRONIC
     Dosage: 2000 ML; EVERY DAY, IP
     Route: 033
     Dates: start: 20050701
  2. DIANEAL PD4 ULTRABAG (DIANEAL PD4 GLUCOSE AND ELECTROLYTES) [Suspect]
  3. FUTHAN (NAFAMOSTAT MESILATE) [Suspect]
  4. EPOGEN [Suspect]

REACTIONS (1)
  - EOSINOPHILIA [None]
